FAERS Safety Report 4917539-2 (Version None)
Quarter: 2006Q1

REPORT INFORMATION
  Report Type: 
  Country: None (occurrence: None)
  Receive Date: 20060221
  Receipt Date: 20050523
  Transmission Date: 20060701
  Serious: Yes (Life-Threatening, Hospitalization, Disabling)
  Sender: FDA-Public Use
  Company Number: US-MERCK-0505USA02725

PATIENT
  Age: 63 Year
  Sex: Male

DRUGS (4)
  1. VIOXX [Suspect]
     Indication: ARTHRITIS
     Route: 048
     Dates: start: 20010718, end: 20040717
  2. VIOXX [Suspect]
     Route: 048
     Dates: start: 20031111, end: 20040717
  3. ATIVAN [Concomitant]
     Route: 065
  4. PERCOCET [Concomitant]
     Route: 065

REACTIONS (15)
  - ACUTE MYOCARDIAL INFARCTION [None]
  - ARTERIAL DISORDER [None]
  - BACTERAEMIA [None]
  - BLOOD CHOLESTEROL INCREASED [None]
  - CHEST PAIN [None]
  - COLONIC POLYP [None]
  - CORONARY ARTERY DISEASE [None]
  - CORONARY ARTERY OCCLUSION [None]
  - CORONARY ARTERY THROMBOSIS [None]
  - DIVERTICULUM [None]
  - DIVERTICULUM INTESTINAL [None]
  - HYPERTENSION [None]
  - HYPOAESTHESIA [None]
  - SPUTUM CULTURE POSITIVE [None]
  - ULCER [None]
